FAERS Safety Report 6791958-4 (Version None)
Quarter: 2010Q2

REPORT INFORMATION
  Report Type: 
  Country: None (occurrence: None)
  Receive Date: 20100624
  Receipt Date: 20080721
  Transmission Date: 20101027
  Serious: No
  Sender: FDA-Public Use
  Company Number: US-PFIZER INC-2008061843

PATIENT
  Sex: Female
  Weight: 39.5 kg

DRUGS (1)
  1. PROCARDIA XL [Suspect]
     Indication: HYPERTENSION

REACTIONS (2)
  - MYALGIA [None]
  - SCIATICA [None]
